FAERS Safety Report 18883232 (Version 1)
Quarter: 2021Q1

REPORT INFORMATION
  Report Type: Spontaneous
  Country: GB (occurrence: GB)
  Receive Date: 20210212
  Receipt Date: 20210212
  Transmission Date: 20210420
  Serious: Yes (Disabling)
  Sender: FDA-Public Use
  Company Number: GB-ACCORD-216850

PATIENT
  Age: 67 Year
  Sex: Male
  Weight: 97.06 kg

DRUGS (11)
  1. OMEPRAZOLE. [Concomitant]
     Active Substance: OMEPRAZOLE
  2. APIXABAN [Concomitant]
     Active Substance: APIXABAN
  3. ATORVASTATIN [Concomitant]
     Active Substance: ATORVASTATIN
  4. CYANOCOBALAMIN. [Concomitant]
     Active Substance: CYANOCOBALAMIN
  5. DIGOXIN. [Concomitant]
     Active Substance: DIGOXIN
  6. FINASTERIDE. [Concomitant]
     Active Substance: FINASTERIDE
  7. FUROSEMIDE. [Suspect]
     Active Substance: FUROSEMIDE
     Indication: CARDIAC FAILURE
     Route: 048
     Dates: start: 2019
  8. EPLERENONE. [Concomitant]
     Active Substance: EPLERENONE
  9. RAMIPRIL. [Concomitant]
     Active Substance: RAMIPRIL
  10. COLECALCIFEROL [Concomitant]
     Active Substance: CHOLECALCIFEROL
  11. BISOPROLOL [Concomitant]
     Active Substance: BISOPROLOL

REACTIONS (7)
  - Dry mouth [Not Recovered/Not Resolved]
  - Back pain [Not Recovered/Not Resolved]
  - Pain in extremity [Not Recovered/Not Resolved]
  - Pain [Not Recovered/Not Resolved]
  - Fatigue [Not Recovered/Not Resolved]
  - Pustule [Not Recovered/Not Resolved]
  - Headache [Not Recovered/Not Resolved]

NARRATIVE: CASE EVENT DATE: 2019
